FAERS Safety Report 11021316 (Version 2)
Quarter: 2015Q2

REPORT INFORMATION
  Report Type: Report from Study
  Country: US (occurrence: US)
  Receive Date: 20150413
  Receipt Date: 20150603
  Transmission Date: 20150821
  Serious: Yes (Hospitalization, Other)
  Sender: FDA-Public Use
  Company Number: US-GILEAD-2015-0148112

PATIENT
  Age: 28 Year
  Sex: Female
  Weight: 82 kg

DRUGS (4)
  1. AMBRISENTAN [Suspect]
     Active Substance: AMBRISENTAN
     Indication: PULMONARY HYPERTENSION
     Dosage: 5 MG, QD
     Route: 065
     Dates: start: 20111027
  2. REMODULIN [Suspect]
     Active Substance: TREPROSTINIL
     Indication: PRODUCT USED FOR UNKNOWN INDICATION
     Dosage: 4.3 NKM
     Route: 042
  3. COUMADIN [Concomitant]
     Active Substance: WARFARIN SODIUM
  4. OXYCODONE [Concomitant]
     Active Substance: OXYCODONE

REACTIONS (2)
  - Device related infection [Unknown]
  - Pain [Unknown]
